FAERS Safety Report 6633050-5 (Version None)
Quarter: 2010Q1

REPORT INFORMATION
  Report Type: 
  Country: None (occurrence: None)
  Receive Date: 20100312
  Receipt Date: 20100301
  Transmission Date: 20100710
  Serious: Yes (Other)
  Sender: FDA-Public Use
  Company Number: PHHY2010CY11317

PATIENT
  Sex: Male

DRUGS (2)
  1. ZOLEDRONATE T29581++BM [Suspect]
     Indication: PROPHYLAXIS
     Dosage: 4 MG, QMO
     Dates: start: 20091125
  2. ZOLEDRONATE T29581++BM [Suspect]
     Dosage: EVERY 5 WEEKS

REACTIONS (1)
  - HYPERCALCAEMIA [None]
